FAERS Safety Report 14361701 (Version 2)
Quarter: 2018Q2

REPORT INFORMATION
  Report Type: Spontaneous
  Country: US (occurrence: US)
  Receive Date: 20180108
  Receipt Date: 20180511
  Transmission Date: 20180711
  Serious: No
  Sender: FDA-Public Use
  Company Number: US-ASTRAZENECA-2018SE00317

PATIENT
  Age: 76 Year
  Sex: Female
  Weight: 55.3 kg

DRUGS (9)
  1. SYMBICORT [Suspect]
     Active Substance: BUDESONIDE\FORMOTEROL FUMARATE DIHYDRATE
     Indication: EMPHYSEMA
     Dosage: 160/4.5 MCG PER INHALATION TWICE A DAY
     Route: 055
     Dates: start: 201701
  2. PULMICORT FLEXHALER [Suspect]
     Active Substance: BUDESONIDE
     Indication: BRONCHITIS CHRONIC
     Dosage: 180MCG 2 PUFFS TWICE A DAY
     Route: 055
     Dates: end: 201701
  3. ZANTAC [Concomitant]
     Active Substance: RANITIDINE HYDROCHLORIDE
     Indication: GASTROOESOPHAGEAL REFLUX DISEASE
     Dosage: EVERY MORNING
     Route: 048
     Dates: start: 2012
  4. PULMICORT FLEXHALER [Suspect]
     Active Substance: BUDESONIDE
     Indication: CHRONIC OBSTRUCTIVE PULMONARY DISEASE
     Dosage: 180MCG 2 PUFFS TWICE A DAY
     Route: 055
     Dates: end: 201701
  5. SYMBICORT [Suspect]
     Active Substance: BUDESONIDE\FORMOTEROL FUMARATE DIHYDRATE
     Indication: BRONCHITIS CHRONIC
     Dosage: 160/4.5 MCG PER INHALATION TWICE A DAY
     Route: 055
     Dates: start: 201701
  6. PULMICORT FLEXHALER [Suspect]
     Active Substance: BUDESONIDE
     Indication: EMPHYSEMA
     Dosage: 180MCG 2 PUFFS TWICE A DAY
     Route: 055
     Dates: end: 201701
  7. SYMBICORT [Suspect]
     Active Substance: BUDESONIDE\FORMOTEROL FUMARATE DIHYDRATE
     Indication: CHRONIC OBSTRUCTIVE PULMONARY DISEASE
     Dosage: 160/4.5 MCG PER INHALATION TWICE A DAY
     Route: 055
     Dates: start: 201701
  8. VENTOLIN [Concomitant]
     Active Substance: ALBUTEROL SULFATE
     Indication: PROPHYLAXIS
     Dosage: AS REQUIRED
     Route: 055
  9. PEPCID [Concomitant]
     Active Substance: FAMOTIDINE
     Indication: GASTROOESOPHAGEAL REFLUX DISEASE
     Dosage: AT NIGHT
     Route: 048
     Dates: start: 2012

REACTIONS (7)
  - Erosive oesophagitis [Unknown]
  - Product quality issue [Unknown]
  - Off label use [Unknown]
  - Gastrointestinal tract irritation [Unknown]
  - Product use issue [Unknown]
  - Intentional product misuse [Unknown]
  - Gastrooesophageal reflux disease [Unknown]

NARRATIVE: CASE EVENT DATE: 2012
